FAERS Safety Report 18203770 (Version 2)
Quarter: 2020Q3

REPORT INFORMATION
  Report Type: Spontaneous
  Country: US (occurrence: US)
  Receive Date: 20200827
  Receipt Date: 20200909
  Transmission Date: 20201103
  Serious: Yes (Hospitalization, Other)
  Sender: FDA-Public Use
  Company Number: US-IBIGEN-2020.09233

PATIENT
  Age: 86 Year
  Sex: Female

DRUGS (6)
  1. IBUPROFEN. [Suspect]
     Active Substance: IBUPROFEN
     Indication: PAIN
     Dosage: AS NEEDED
  2. PIPERACILLIN AND TAZOBACTAM [Suspect]
     Active Substance: PIPERACILLIN SODIUM\TAZOBACTAM SODIUM
     Indication: OSTEOMYELITIS
     Dosage: PIPERACILLIN?TAZOBACTAM (TZP) 2.25 MG
     Route: 042
  3. VANCOMYCIN [Suspect]
     Active Substance: VANCOMYCIN
     Indication: OSTEOMYELITIS
     Dosage: EVERY 12 HOURS (THROUGH THE PICC)
     Route: 042
  4. METHOTREXATE. [Suspect]
     Active Substance: METHOTREXATE
     Indication: RHEUMATOID ARTHRITIS
     Route: 048
  5. PREDNISONE. [Suspect]
     Active Substance: PREDNISONE
     Indication: RHEUMATOID ARTHRITIS
     Route: 048
  6. FOLIC ACID. [Concomitant]
     Active Substance: FOLIC ACID

REACTIONS (19)
  - Odynophagia [Unknown]
  - Pain [Unknown]
  - Thrombocytopenia [Unknown]
  - Drug interaction [Unknown]
  - Nephropathy toxic [Recovering/Resolving]
  - Mouth haemorrhage [Unknown]
  - Drug level above therapeutic [Recovered/Resolved]
  - Lip ulceration [Unknown]
  - Acute kidney injury [Recovering/Resolving]
  - Febrile neutropenia [Unknown]
  - Toxicity to various agents [Recovered/Resolved]
  - Glomerular filtration rate decreased [Unknown]
  - Leukopenia [Unknown]
  - Stomatitis [Unknown]
  - Haematemesis [Unknown]
  - Blood creatinine increased [Not Recovered/Not Resolved]
  - Gingival bleeding [Unknown]
  - Gingival pain [Unknown]
  - Pancytopenia [Recovered/Resolved]
